FAERS Safety Report 7455442-7 (Version None)
Quarter: 2011Q2

REPORT INFORMATION
  Report Type: 
  Country: None (occurrence: None)
  Receive Date: 20110503
  Receipt Date: 20100429
  Transmission Date: 20111010
  Serious: No
  Sender: FDA-Public Use
  Company Number: US-SANOFI-AVENTIS-2010SA025431

PATIENT
  Age: 73 Year
  Sex: Female

DRUGS (2)
  1. APIDRA [Suspect]
     Dosage: PRODUCT STARTED 3-4 YEARS AGO ON A SLIDING SCALE
     Route: 065
  2. OPTICLICK [Suspect]
     Dosage: STARTED 3-4 YEARS AGO

REACTIONS (2)
  - EXPIRED DRUG ADMINISTERED [None]
  - ABNORMAL SENSATION IN EYE [None]
